FAERS Safety Report 15372330 (Version 1)
Quarter: 2018Q3

REPORT INFORMATION
  Report Type: Report from Study
  Country: AT (occurrence: AT)
  Receive Date: 20180911
  Receipt Date: 20180911
  Transmission Date: 20181010
  Serious: Yes (Hospitalization)
  Sender: FDA-Public Use
  Company Number: AT-ELI_LILLY_AND_COMPANY-AT201808015856

PATIENT
  Age: 68 Year
  Sex: Female
  Weight: 72.4 kg

DRUGS (13)
  1. GEMCITABINE HYDROCHLORIDE. [Suspect]
     Active Substance: GEMCITABINE HYDROCHLORIDE
     Dosage: UNK, UNKNOWN
     Route: 065
     Dates: end: 20170918
  2. GEMCITABINE HYDROCHLORIDE. [Suspect]
     Active Substance: GEMCITABINE HYDROCHLORIDE
     Dosage: UNK, UNKNOWN
     Route: 065
     Dates: start: 201804
  3. GEMCITABINE HYDROCHLORIDE. [Suspect]
     Active Substance: GEMCITABINE HYDROCHLORIDE
     Dosage: 2000 MG/M2, UNKNOWN
     Route: 041
     Dates: start: 20160602
  4. ABRAXANE [Suspect]
     Active Substance: PACLITAXEL
     Dosage: UNK, UNKNOWN
     Route: 065
     Dates: start: 201804
  5. ABRAXANE [Suspect]
     Active Substance: PACLITAXEL
     Dosage: 200 MG/M2, UNKNOWN
     Route: 041
     Dates: start: 20170904
  6. GEMCITABINE HYDROCHLORIDE. [Suspect]
     Active Substance: GEMCITABINE HYDROCHLORIDE
     Indication: PRODUCT USED FOR UNKNOWN INDICATION
     Dosage: 800 MG/M2, WEEKLY (1/W)
     Route: 041
     Dates: start: 20170721
  7. ABRAXANE [Suspect]
     Active Substance: PACLITAXEL
     Dosage: 100 MG/M2, WEEKLY (1/W)
     Route: 041
     Dates: start: 20170803
  8. GEMCITABINE HYDROCHLORIDE. [Suspect]
     Active Substance: GEMCITABINE HYDROCHLORIDE
     Dosage: 1600 MG/M2, UNKNOWN
     Route: 041
     Dates: start: 20170904
  9. G?CSF [Concomitant]
     Active Substance: GRANULOCYTE COLONY-STIMULATING FACTOR NOS
     Indication: PRODUCT USED FOR UNKNOWN INDICATION
     Dosage: UNK
     Route: 065
  10. GEMCITABINE HYDROCHLORIDE. [Suspect]
     Active Substance: GEMCITABINE HYDROCHLORIDE
     Dosage: 800 MG/M2, WEEKLY (1/W)
     Route: 041
     Dates: start: 20160623
  11. ABRAXANE [Suspect]
     Active Substance: PACLITAXEL
     Dosage: 250 MG/M2, UNKNOWN
     Route: 041
     Dates: start: 20160602
  12. ABRAXANE [Suspect]
     Active Substance: PACLITAXEL
     Dosage: UNK, UNKNOWN
     Route: 065
     Dates: end: 20170918
  13. ABRAXANE [Suspect]
     Active Substance: PACLITAXEL
     Indication: DUCTAL ADENOCARCINOMA OF PANCREAS
     Dosage: 100 MG/M2, WEEKLY (1/W)
     Route: 041
     Dates: start: 20160623

REACTIONS (5)
  - Thrombocytopenia [Recovered/Resolved]
  - Febrile infection [Recovered/Resolved]
  - Pulmonary hypertension [Recovered/Resolved]
  - Pneumonia [Recovered/Resolved]
  - Cardiac failure [Recovered/Resolved]

NARRATIVE: CASE EVENT DATE: 20170806
